FAERS Safety Report 21328459 (Version 2)
Quarter: 2022Q3

REPORT INFORMATION
  Report Type: Spontaneous
  Country: US (occurrence: US)
  Receive Date: 20220913
  Receipt Date: 20220930
  Transmission Date: 20221026
  Serious: Yes (Hospitalization)
  Sender: FDA-Public Use
  Company Number: US-INCYTE CORPORATION-2022IN008736

PATIENT

DRUGS (1)
  1. JAKAFI [Suspect]
     Active Substance: RUXOLITINIB
     Dosage: 10 MILLIGRAM, BID
     Route: 048
     Dates: start: 20210102

REACTIONS (6)
  - COVID-19 [Unknown]
  - Confusional state [Unknown]
  - Mental status changes [Unknown]
  - Cough [Unknown]
  - Pyrexia [Unknown]
  - Blood blister [Unknown]

NARRATIVE: CASE EVENT DATE: 20220901
